FAERS Safety Report 5110705-5 (Version None)
Quarter: 2006Q3

REPORT INFORMATION
  Report Type: 
  Country: None (occurrence: None)
  Receive Date: 20060921
  Receipt Date: 20060905
  Transmission Date: 20061208
  Serious: Yes (Disabling)
  Sender: FDA-Public Use
  Company Number: PH-MERCK-0609PHL00001

PATIENT
  Age: 54 Year
  Sex: Female

DRUGS (5)
  1. FOSAMAX PLUS D [Suspect]
     Indication: BONE DENSITY DECREASED
     Route: 048
     Dates: start: 20060826, end: 20060826
  2. COZAAR [Concomitant]
     Indication: HYPERTENSION
     Route: 048
     Dates: start: 20050101
  3. ISOSORBIDE MONONITRATE [Concomitant]
     Indication: CORONARY ARTERY DISEASE
     Route: 048
     Dates: start: 20050101
  4. DIGOXIN [Concomitant]
     Indication: CORONARY ARTERY DISEASE
     Route: 048
     Dates: start: 20050101
  5. INSULIN [Concomitant]
     Indication: DIABETES MELLITUS INSULIN-DEPENDENT
     Route: 065
     Dates: start: 19860101

REACTIONS (5)
  - GAIT DISTURBANCE [None]
  - JOINT SWELLING [None]
  - MALAISE [None]
  - NAUSEA [None]
  - VOMITING [None]
